FAERS Safety Report 10962508 (Version 1)
Quarter: 2015Q1

REPORT INFORMATION
  Report Type: Spontaneous
  Country: US (occurrence: US)
  Receive Date: 20150327
  Receipt Date: 20150327
  Transmission Date: 20150721
  Serious: Yes (Hospitalization, Congenital Anomaly, Other)
  Sender: FDA-Public Use
  Company Number: US-ELI_LILLY_AND_COMPANY-US201503007844

PATIENT
  Age: 0 Day

DRUGS (7)
  1. PROZAC [Suspect]
     Active Substance: FLUOXETINE HYDROCHLORIDE
     Dosage: 20 MG, QD
     Route: 064
     Dates: start: 19970617
  2. PROZAC [Suspect]
     Active Substance: FLUOXETINE HYDROCHLORIDE
     Dosage: 20 MG, QD
     Route: 064
     Dates: start: 19970426
  3. IRON                               /00023516/ [Concomitant]
     Route: 064
  4. PROZAC [Suspect]
     Active Substance: FLUOXETINE HYDROCHLORIDE
     Indication: DEPRESSION
     Dosage: UNK, UNKNOWN
     Route: 064
  5. PROZAC [Suspect]
     Active Substance: FLUOXETINE HYDROCHLORIDE
     Dosage: 20 MG, QOD
     Route: 064
     Dates: start: 19970510
  6. PRENATE ULTRA [Concomitant]
     Route: 064
  7. PROZAC [Suspect]
     Active Substance: FLUOXETINE HYDROCHLORIDE
     Dosage: 40 MG, QD
     Route: 064
     Dates: start: 19971021

REACTIONS (8)
  - Foetal exposure during pregnancy [Recovered/Resolved]
  - Anomaly of external ear congenital [Unknown]
  - Premature baby [Recovered/Resolved]
  - Talipes [Unknown]
  - Tethered cord syndrome [Recovering/Resolving]
  - Anomaly of middle ear congenital [Unknown]
  - Small for dates baby [Unknown]
  - Conductive deafness [Not Recovered/Not Resolved]

NARRATIVE: CASE EVENT DATE: 19971108
